FAERS Safety Report 14898513 (Version 1)
Quarter: 2018Q2

REPORT INFORMATION
  Report Type: Spontaneous
  Country: US (occurrence: US)
  Receive Date: 20180515
  Receipt Date: 20180515
  Transmission Date: 20180711
  Serious: No
  Sender: FDA-Public Use
  Company Number: US-ALLERGAN-1803913US

PATIENT
  Sex: Female
  Weight: 49.89 kg

DRUGS (1)
  1. CONDYLOX [Suspect]
     Active Substance: PODOFILOX
     Indication: MOLLUSCUM CONTAGIOSUM
     Dosage: UNK, BID FOR 3 DAYS THEN STOP FOR 4 DAYS
     Route: 061
     Dates: end: 201801

REACTIONS (2)
  - Application site burn [Recovered/Resolved]
  - Pain [Recovered/Resolved]
